FAERS Safety Report 5411446-7 (Version None)
Quarter: 2007Q3

REPORT INFORMATION
  Report Type: 
  Country: None (occurrence: None)
  Receive Date: 20070810
  Receipt Date: 20070802
  Transmission Date: 20080115
  Serious: Yes (Other)
  Sender: FDA-Public Use
  Company Number: US-PURDUE-USA_2006_0025899

PATIENT
  Age: 20 Year
  Sex: Female

DRUGS (5)
  1. AMBIEN [Suspect]
     Indication: DRUG USE FOR UNKNOWN INDICATION
  2. OXYCONTIN [Suspect]
     Indication: DRUG ABUSER
     Dosage: UNK, UNK
  3. COCAINE [Suspect]
     Indication: DRUG ABUSER
     Dosage: UNK, UNK
  4. ALCOHOL [Suspect]
     Indication: ALCOHOLISM
     Dosage: UNK, UNK
  5. XANAX [Suspect]

REACTIONS (9)
  - DRUG DEPENDENCE [None]
  - EUPHORIC MOOD [None]
  - FEELING ABNORMAL [None]
  - GENERAL PHYSICAL HEALTH DETERIORATION [None]
  - HYPERHIDROSIS [None]
  - INSOMNIA [None]
  - NEGLECT OF PERSONAL APPEARANCE [None]
  - SUBSTANCE ABUSE [None]
  - SUICIDE ATTEMPT [None]
